FAERS Safety Report 12970449 (Version 1)
Quarter: 2016Q4

REPORT INFORMATION
  Report Type: Spontaneous
  Country: IN (occurrence: IN)
  Receive Date: 20161123
  Receipt Date: 20161123
  Transmission Date: 20170207
  Serious: Yes (Hospitalization, Other)
  Sender: FDA-Public Use
  Company Number: IN-PFIZER INC-2016524569

PATIENT
  Age: 70 Year
  Sex: Female

DRUGS (3)
  1. PHENYTOIN. [Suspect]
     Active Substance: PHENYTOIN
     Dosage: UNK (TAPERED AND STOPPED IN 3 DAYS)
  2. PHENYTOIN. [Suspect]
     Active Substance: PHENYTOIN
     Indication: GENERALISED TONIC-CLONIC SEIZURE
     Dosage: 100 MG, 2X/DAY (BD)
     Route: 048
  3. PHENYTOIN. [Suspect]
     Active Substance: PHENYTOIN
     Dosage: 150 MG, 2X/DAY (BD)
     Route: 048

REACTIONS (10)
  - Delirium [Unknown]
  - Confusional state [Unknown]
  - Dizziness [Unknown]
  - Hallucination, auditory [Unknown]
  - Fall [Recovered/Resolved]
  - Gait disturbance [Unknown]
  - Toxicity to various agents [Unknown]
  - Dyskinesia [Recovered/Resolved]
  - Ataxia [Unknown]
  - Speech disorder [Unknown]
